FAERS Safety Report 4555260-3 (Version None)
Quarter: 2004Q4

REPORT INFORMATION
  Report Type: 
  Country: None (occurrence: None)
  Receive Date: 20041217
  Receipt Date: 20040831
  Transmission Date: 20050328
  Serious: No
  Sender: FDA-Public Use
  Company Number: 2004-BP-07570BP

PATIENT
  Age: 74 Year
  Sex: Male

DRUGS (6)
  1. SPIRIVA [Suspect]
     Indication: CHRONIC OBSTRUCTIVE AIRWAYS DISEASE
     Dosage: 18 MCG (18 MCG), IH
     Route: 055
  2. ZOCOR [Suspect]
     Dosage: 40 MG
     Dates: end: 20040831
  3. HYZAR [Concomitant]
  4. NORVASC [Concomitant]
  5. ADVAIR (SERETIDE MITE) [Concomitant]
  6. PROVENTIL (SALBUTAMOL SULFATE) [Concomitant]

REACTIONS (1)
  - INCREASED APPETITE [None]
